FAERS Safety Report 13626136 (Version 1)
Quarter: 2017Q2

REPORT INFORMATION
  Report Type: Spontaneous
  Country: US (occurrence: US)
  Receive Date: 20170607
  Receipt Date: 20170607
  Transmission Date: 20170830
  Serious: Yes (Disabling)
  Sender: FDA-Public Use
  Company Number: None

PATIENT
  Age: 66 Year
  Sex: Male
  Weight: 78.75 kg

DRUGS (9)
  1. VALSARTAN. [Suspect]
     Active Substance: VALSARTAN
     Indication: HYPERTENSION
     Dosage: ?          QUANTITY:1 TABLET(S);?
     Route: 048
  2. SUCRALFATE. [Concomitant]
     Active Substance: SUCRALFATE
  3. PEPCID [Concomitant]
     Active Substance: FAMOTIDINE
  4. CLONIDINE. [Concomitant]
     Active Substance: CLONIDINE
  5. ESOMEPRAZOLE [Concomitant]
     Active Substance: ESOMEPRAZOLE
  6. GASRELIEF PRODUCT [Concomitant]
  7. HEMORRHOIDAL CREAM [Concomitant]
     Active Substance: GLYCERIN\PETROLATUM\PHENYLEPHRINE HYDROCHLORIDE\PRAMOXINE HYDROCHLORIDE
  8. ASPIRIN. [Concomitant]
     Active Substance: ASPIRIN
  9. ZANTAC [Concomitant]
     Active Substance: RANITIDINE HYDROCHLORIDE

REACTIONS (3)
  - Dysuria [None]
  - Dyschezia [None]
  - Burning sensation [None]

NARRATIVE: CASE EVENT DATE: 20160712
